FAERS Safety Report 4921373-7 (Version None)
Quarter: 2006Q1

REPORT INFORMATION
  Report Type: 
  Country: None (occurrence: None)
  Receive Date: 20060222
  Receipt Date: 20060222
  Transmission Date: 20060701
  Serious: Yes (Life-Threatening, Hospitalization)
  Sender: FDA-Public Use
  Company Number: None

PATIENT
  Age: 10 Year
  Sex: Male

DRUGS (2)
  1. CEFTRIAXONE [Suspect]
     Indication: CELLULITIS
     Dosage: 1 G IV OTO
     Route: 042
     Dates: start: 20050906
  2. AUGMENTIN '125' [Concomitant]

REACTIONS (1)
  - ANAPHYLACTIC REACTION [None]
